FAERS Safety Report 8948006 (Version 2)
Quarter: 2013Q2

REPORT INFORMATION
  Report Type: Other
  Country: GB (occurrence: GB)
  Receive Date: 20121204
  Receipt Date: 20130529
  Transmission Date: 20140414
  Serious: Yes (Hospitalization, Other)
  Sender: FDA-Public Use
  Company Number: GB-WATSON-2012-20870

PATIENT
  Age: 53 Year
  Sex: Female

DRUGS (9)
  1. MIRTAZAPINE (UNKNOWN) [Suspect]
     Indication: DEPRESSION
     Dosage: 15 MG, UNKNOWN
     Route: 048
     Dates: start: 20121101, end: 20121112
  2. TELAPREVIR [Concomitant]
     Indication: HEPATITIS C
     Dosage: 2250 MG, UNKNOWN
     Route: 048
     Dates: start: 20121009
  3. PEGYLATED INTERFERON ALFA-2A [Concomitant]
     Indication: HEPATITIS C
     Dosage: 180 MCG, UNKNOWN
     Route: 058
     Dates: start: 20120903
  4. RIBAVIRIN [Concomitant]
     Indication: HEPATITIS C
     Dosage: 1000 MG, UNKNOWN
     Route: 048
     Dates: start: 20120903
  5. ZOLPIDEM [Concomitant]
     Indication: INSOMNIA
     Dosage: 10 MG, UNKNOWN
     Route: 048
     Dates: start: 20121101
  6. SANDO K                            /00031402/ [Concomitant]
     Indication: BLOOD POTASSIUM DECREASED
     Dosage: 1 DF TID
     Route: 048
     Dates: start: 20121106
  7. METOCLOPRAMIDE [Concomitant]
     Indication: NAUSEA
     Dosage: 10 MG, UNKNOWN
     Route: 048
     Dates: start: 20121008
  8. RANITIDINE [Concomitant]
     Indication: PRODUCT USED FOR UNKNOWN INDICATION
     Dosage: UNK
     Route: 065
  9. CYCLIZINE [Concomitant]
     Indication: PRODUCT USED FOR UNKNOWN INDICATION
     Dosage: UNK
     Route: 065

REACTIONS (5)
  - Hallucination [Recovered/Resolved]
  - Confusional state [Recovered/Resolved]
  - Disorientation [Recovered/Resolved]
  - Abnormal dreams [Recovered/Resolved]
  - Vomiting [Recovered/Resolved]
